APPROVED DRUG PRODUCT: MAGNESIUM SULFATE IN PLASTIC CONTAINER
Active Ingredient: MAGNESIUM SULFATE
Strength: 4GM/50ML (80MG/ML)
Dosage Form/Route: INJECTABLE;INJECTION
Application: A206485 | Product #002 | TE Code: AP
Applicant: FRESENIUS KABI USA LLC
Approved: Mar 15, 2016 | RLD: No | RS: No | Type: RX